FAERS Safety Report 6785686-9 (Version None)
Quarter: 2010Q2

REPORT INFORMATION
  Report Type: 
  Country: None (occurrence: None)
  Receive Date: 20100623
  Receipt Date: 20081009
  Transmission Date: 20101027
  Serious: Yes (Death)
  Sender: FDA-Public Use
  Company Number: ES-GENZYME-THYM-1000813

PATIENT

DRUGS (1)
  1. THYMOGLOBULIN [Suspect]
     Indication: ACUTE GRAFT VERSUS HOST DISEASE
     Dosage: 2.5 MG/KG, UNK

REACTIONS (2)
  - ACUTE GRAFT VERSUS HOST DISEASE [None]
  - THERAPEUTIC RESPONSE DECREASED [None]
